FAERS Safety Report 5030088-9 (Version None)
Quarter: 2006Q2

REPORT INFORMATION
  Report Type: 
  Country: None (occurrence: None)
  Receive Date: 20060614
  Receipt Date: 20060602
  Transmission Date: 20061013
  Serious: Yes (Hospitalization, Disabling)
  Sender: FDA-Public Use
  Company Number: 2006053486

PATIENT
  Age: 55 Year
  Sex: Male
  Weight: 49.8957 kg

DRUGS (2)
  1. BEXTRA [Suspect]
     Indication: JOINT INJURY
     Dosage: 40 MG (20 MG, 2 IN 1 D)
     Dates: start: 20021205, end: 20040501
  2. BEXTRA [Suspect]
     Indication: PAIN
     Dosage: 40 MG (20 MG, 2 IN 1 D)
     Dates: start: 20021205, end: 20040501

REACTIONS (2)
  - POLYTRAUMATISM [None]
  - SUBDURAL HAEMATOMA [None]
